FAERS Safety Report 14120511 (Version 4)
Quarter: 2019Q1

REPORT INFORMATION
  Report Type: Spontaneous
  Country: DE (occurrence: DE)
  Receive Date: 20171024
  Receipt Date: 20190104
  Transmission Date: 20190417
  Serious: Yes (Other)
  Sender: FDA-Public Use
  Company Number: PHHY2017DE154764

PATIENT
  Age: 67 Year
  Sex: Male

DRUGS (3)
  1. COSENTYX [Suspect]
     Active Substance: SECUKINUMAB
     Indication: PSORIASIS
     Dosage: 300 MG, QMO
     Route: 058
     Dates: start: 20160829
  2. COSENTYX [Suspect]
     Active Substance: SECUKINUMAB
     Indication: UVEITIS
     Dosage: 300 MG, QMO
     Route: 058
     Dates: start: 201609, end: 201710
  3. VALSARTAN. [Concomitant]
     Active Substance: VALSARTAN
     Indication: HYPERTENSION
     Dosage: 160 MG, QD (SINCE FIVE YEARS)
     Route: 065

REACTIONS (2)
  - Blood urine present [Unknown]
  - Transitional cell carcinoma [Unknown]

NARRATIVE: CASE EVENT DATE: 201707
